FAERS Safety Report 18133980 (Version 1)
Quarter: 2020Q3

REPORT INFORMATION
  Report Type: Spontaneous
  Country: US (occurrence: US)
  Receive Date: 20200811
  Receipt Date: 20200811
  Transmission Date: 20201103
  Serious: No
  Sender: FDA-Public Use
  Company Number: US-SA-2020SA207935

PATIENT

DRUGS (1)
  1. DUPIXENT [Suspect]
     Active Substance: DUPILUMAB
     Indication: SEASONAL ALLERGY
     Dosage: 200 MG, QOW
     Route: 058

REACTIONS (3)
  - Rash pruritic [Recovering/Resolving]
  - Therapeutic response decreased [Unknown]
  - Product use in unapproved indication [Unknown]
